FAERS Safety Report 20620766 (Version 1)
Quarter: 2022Q1

REPORT INFORMATION
  Report Type: Spontaneous
  Country: ES (occurrence: ES)
  Receive Date: 20220322
  Receipt Date: 20220322
  Transmission Date: 20220423
  Serious: Yes (Hospitalization, Other)
  Sender: FDA-Public Use
  Company Number: ES-MLMSERVICE-20220308-3414725-1

PATIENT
  Age: 43 Year

DRUGS (1)
  1. FENOFIBRATE [Suspect]
     Active Substance: FENOFIBRATE
     Indication: Hypertriglyceridaemia
     Dosage: 145 MILLIGRAM, OD
     Route: 065

REACTIONS (5)
  - Pulmonary toxicity [Recovered/Resolved]
  - Hepatotoxicity [Recovered/Resolved]
  - Hepatitis cholestatic [Recovered/Resolved]
  - Interstitial lung disease [Recovered/Resolved]
  - Eosinophilia [Recovered/Resolved]
